FAERS Safety Report 21243032 (Version 1)
Quarter: 2022Q3

REPORT INFORMATION
  Report Type: Spontaneous
  Country: CA (occurrence: CA)
  Receive Date: 20220823
  Receipt Date: 20220823
  Transmission Date: 20221027
  Serious: Yes (Other)
  Sender: FDA-Public Use
  Company Number: CA-PFIZER INC-202101780845

PATIENT
  Age: 60 Year
  Sex: Female
  Weight: 69 kg

DRUGS (10)
  1. RUXIENCE [Suspect]
     Active Substance: RITUXIMAB-PVVR
     Indication: Vasculitis
     Dosage: 682 MG, FOR 2 DOSES
     Route: 042
     Dates: start: 20220114
  2. RUXIENCE [Suspect]
     Active Substance: RITUXIMAB-PVVR
     Indication: Anti-neutrophil cytoplasmic antibody positive vasculitis
     Dosage: 682 MG, WEEKLY (WEEKLY X 4)
     Route: 042
     Dates: start: 20220114, end: 20220204
  3. RUXIENCE [Suspect]
     Active Substance: RITUXIMAB-PVVR
     Dosage: 682 MG, WEEKLY (WEEKLY X 4)
     Route: 042
     Dates: start: 20220121
  4. RUXIENCE [Suspect]
     Active Substance: RITUXIMAB-PVVR
     Dosage: 682 MG, WEEKLY (WEEKLY X 4)
     Route: 042
     Dates: start: 20220121
  5. RUXIENCE [Suspect]
     Active Substance: RITUXIMAB-PVVR
     Dosage: 682 MG, WEEKLY (WEEKLY X 4)
     Route: 042
     Dates: start: 20220128
  6. RUXIENCE [Suspect]
     Active Substance: RITUXIMAB-PVVR
     Dosage: 682 MG, WEEKLY (WEEKLY X 4)
     Route: 042
     Dates: start: 20220204
  7. RUXIENCE [Suspect]
     Active Substance: RITUXIMAB-PVVR
     Dosage: 500MG, DAY 0 AND DAY 14
     Route: 042
     Dates: start: 20220816
  8. CALCIUM [Concomitant]
     Active Substance: CALCIUM
     Dosage: 1 DF, DOSAGE INFO NOT AVAILABLE
     Route: 065
  9. RISEDRONATE SODIUM [Concomitant]
     Active Substance: RISEDRONATE SODIUM
     Dosage: 1 DF, DOSAGE INFO NOT AVAILABLE
     Route: 065
  10. CHOLECALCIFEROL [Concomitant]
     Active Substance: CHOLECALCIFEROL
     Dosage: 1 DF, DOSAGE INFO NOT AVAILABLE
     Route: 065

REACTIONS (13)
  - Dyspnoea [Recovered/Resolved]
  - Pharyngeal hypoaesthesia [Recovered/Resolved]
  - Hypoaesthesia [Recovered/Resolved]
  - Nausea [Recovered/Resolved]
  - Rhinorrhoea [Recovered/Resolved]
  - Cough [Recovered/Resolved]
  - Respiratory disorder [Unknown]
  - Chest pain [Unknown]
  - Throat tightness [Recovered/Resolved]
  - Headache [Unknown]
  - COVID-19 [Recovered/Resolved]
  - Off label use [Unknown]
  - Off label use [Unknown]

NARRATIVE: CASE EVENT DATE: 20220101
